FAERS Safety Report 8768276 (Version 1)
Quarter: 2012Q4

REPORT INFORMATION
  Report Type: 
  Country: FR (occurrence: FR)
  Receive Date: 20120904
  Receipt Date: 20120904
  Transmission Date: 20130627
  Serious: Yes (Other)
  Sender: FDA-Public Use
  Company Number: FR-009507513-2012SP036075

PATIENT

DRUGS (8)
  1. BOCEPREVIR [Suspect]
     Indication: HEPATITIS C
     Dosage: 800 mg, TID
     Dates: start: 20120601, end: 20120711
  2. VIRAFERONPEG [Suspect]
     Indication: HEPATITIS C
     Dosage: 150 ?g, QW
     Dates: start: 20120503, end: 20120711
  3. REBETOL [Suspect]
     Indication: HEPATITIS C
     Dosage: 1200 mg, QD
     Dates: start: 20120503, end: 20120711
  4. NEORECORMON [Concomitant]
     Indication: PANCYTOPENIA
     Dosage: 30000 IU, QW
     Dates: start: 20120614
  5. INEXIUM [Concomitant]
     Indication: GASTRITIS PROPHYLAXIS
     Dosage: 40 mg, QD
     Dates: start: 20120405
  6. DOLIPRANE [Concomitant]
     Indication: INFLUENZA
     Dosage: 1 TO 4 DF QD
     Dates: start: 20120503
  7. UVEDOSE [Concomitant]
     Indication: VITAMIN D DEFICIENCY
     Dosage: 1 DF MONTHLY FOR 3 MONTHS
  8. TARDYFERON [Concomitant]
     Indication: THERAPEUTIC PROCEDURE
     Dosage: 80 mg, QD
     Dates: start: 20120114

REACTIONS (1)
  - Neutropenia [Recovered/Resolved]
